FAERS Safety Report 24689046 (Version 1)
Quarter: 2024Q4

REPORT INFORMATION
  Report Type: Spontaneous
  Country: GB (occurrence: GB)
  Receive Date: 20241203
  Receipt Date: 20241203
  Transmission Date: 20250115
  Serious: Yes (Other)
  Sender: ORGANON
  Company Number: None

PATIENT
  Age: 10 Year
  Sex: Male
  Weight: 38 kg

DRUGS (4)
  1. MONTELUKAST SODIUM [Suspect]
     Active Substance: MONTELUKAST SODIUM
     Indication: Ill-defined disorder
     Dosage: AT NIGHT
     Route: 048
     Dates: start: 20240807
  2. TERBINAFINE [Concomitant]
     Active Substance: TERBINAFINE\TERBINAFINE HYDROCHLORIDE
     Indication: Ill-defined disorder
     Dosage: TO BE APPLIED THINLY TO THE AFFECTED AREA(S)
     Route: 061
     Dates: start: 20241129
  3. ALBUTEROL [Concomitant]
     Active Substance: ALBUTEROL
     Indication: Ill-defined disorder
     Dosage: INHALE ONE TO TWO DOSES AS NEEDED
     Dates: start: 20240626
  4. BECLOMETHASONE DIPROPIONATE [Concomitant]
     Active Substance: BECLOMETHASONE DIPROPIONATE
     Indication: Ill-defined disorder
     Dosage: 2 DOSAGE FORM, Q12H
     Dates: start: 20240807

REACTIONS (2)
  - Abnormal behaviour [Unknown]
  - Aggression [Unknown]

NARRATIVE: CASE EVENT DATE: 20241129
